FAERS Safety Report 6867102-1 (Version None)
Quarter: 2010Q3

REPORT INFORMATION
  Report Type: 
  Country: None (occurrence: None)
  Receive Date: 20100722
  Receipt Date: 20100720
  Transmission Date: 20110219
  Serious: Yes (Other)
  Sender: FDA-Public Use
  Company Number: A0867223A

PATIENT
  Age: 48 Year
  Sex: Female

DRUGS (4)
  1. ADVAIR DISKUS 100/50 [Suspect]
     Indication: ASTHMA
     Route: 055
     Dates: start: 20100101
  2. ALPRAZOLAM [Concomitant]
  3. PRISTIQ [Concomitant]
  4. PROVENTIL [Concomitant]

REACTIONS (3)
  - ASTHMA [None]
  - INHALATION THERAPY [None]
  - PRODUCT QUALITY ISSUE [None]
